FAERS Safety Report 8895686 (Version 2)
Quarter: 2012Q4

REPORT INFORMATION
  Report Type: 
  Country: DE (occurrence: GB)
  Receive Date: 20121108
  Receipt Date: 20121217
  Transmission Date: 20130627
  Serious: Yes (Other)
  Sender: FDA-Public Use
  Company Number: GB-AMGEN-GBRSP2012070468

PATIENT
  Age: 12 Year
  Sex: Female

DRUGS (3)
  1. PROLIA [Suspect]
     Indication: HYPERCALCAEMIA
     Dosage: 0.27 mg/kg, one time dose
     Route: 058
  2. PROLIA [Suspect]
     Dosage: 5 mg, q4wk
  3. PROLIA [Suspect]
     Dosage: 5 mg, q7wk

REACTIONS (1)
  - Hypercalcaemia [Unknown]
